FAERS Safety Report 4503453-3 (Version None)
Quarter: 2004Q4

REPORT INFORMATION
  Report Type: 
  Country: None (occurrence: None)
  Receive Date: 20041112
  Receipt Date: 20041022
  Transmission Date: 20050328
  Serious: Yes (Other)
  Sender: FDA-Public Use
  Company Number: 2004088254

PATIENT
  Sex: Female
  Weight: 54.4316 kg

DRUGS (2)
  1. BENADRYL [Suspect]
     Indication: PARKINSON'S DISEASE
     Dosage: 25MG DAILY DOSE (IN 5MG INCREMENTS), ORAL
     Route: 048
     Dates: start: 20000101
  2. DRUG, UNSPECIFIED (DRUG, UNSPECIFIED) [Concomitant]

REACTIONS (3)
  - CARDIAC FAILURE CONGESTIVE [None]
  - INCREASED APPETITE [None]
  - WEIGHT INCREASED [None]
